APPROVED DRUG PRODUCT: LOVASTATIN
Active Ingredient: LOVASTATIN
Strength: 40MG
Dosage Form/Route: TABLET;ORAL
Application: A077748 | Product #003 | TE Code: AB
Applicant: COREPHARMA LLC
Approved: Feb 28, 2007 | RLD: No | RS: No | Type: RX